FAERS Safety Report 4620061-4 (Version None)
Quarter: 2005Q1

REPORT INFORMATION
  Report Type: 
  Country: None (occurrence: None)
  Receive Date: 20050328
  Receipt Date: 20050323
  Transmission Date: 20050727
  Serious: Yes (Death)
  Sender: FDA-Public Use
  Company Number: PHRM2005FR01124

PATIENT
  Age: 23 Year
  Sex: Male

DRUGS (3)
  1. AMFETAMINE [Concomitant]
  2. MORPHINE [Concomitant]
  3. LIORESAL [Suspect]
     Indication: MUSCLE SPASTICITY
     Dosage: 100 MG/DAY
     Route: 048
     Dates: start: 19990101

REACTIONS (5)
  - CARDIAC FAILURE [None]
  - CHROMATURIA [None]
  - DYSPNOEA EXERTIONAL [None]
  - NERVOUS SYSTEM DISORDER [None]
  - OVERDOSE [None]
